FAERS Safety Report 8603462-9 (Version None)
Quarter: 2012Q3

REPORT INFORMATION
  Report Type: 
  Country: None (occurrence: None)
  Receive Date: 20120817
  Receipt Date: 20120808
  Transmission Date: 20120928
  Serious: No
  Sender: FDA-Public Use
  Company Number: US-ASTRAZENECA-2006UW09724

PATIENT
  Age: 85 Year
  Sex: Female
  Weight: 63.5 kg

DRUGS (8)
  1. TOPROL-XL [Suspect]
     Indication: HYPERTENSION
     Route: 048
  2. SYNTHROID [Concomitant]
  3. HYDROCHLOROTHIAZIDE [Concomitant]
  4. TRIAMTERENE [Concomitant]
  5. LORAZEPAM [Concomitant]
  6. TOPROL-XL [Suspect]
     Route: 048
     Dates: start: 20060501
  7. POTASSIUM [Concomitant]
  8. M.V.I. [Concomitant]

REACTIONS (3)
  - HYPERTENSION [None]
  - DRUG INEFFECTIVE [None]
  - BLOOD PRESSURE FLUCTUATION [None]
